FAERS Safety Report 14304333 (Version 1)
Quarter: 2017Q4

REPORT INFORMATION
  Report Type: Spontaneous
  Country: US (occurrence: US)
  Receive Date: 20171219
  Receipt Date: 20171219
  Transmission Date: 20180321
  Serious: Yes (Death)
  Sender: FDA-Public Use
  Company Number: US-OTSUKA-DJ201404661

PATIENT
  Age: 24 Year
  Sex: Female
  Weight: 90.48 kg

DRUGS (15)
  1. XANAX [Suspect]
     Active Substance: ALPRAZOLAM
     Indication: PRODUCT USED FOR UNKNOWN INDICATION
     Dosage: UNK
     Route: 065
  2. ABILIFY [Suspect]
     Active Substance: ARIPIPRAZOLE
     Indication: ABDOMINAL PAIN UPPER
     Dosage: UNK
     Route: 065
  3. MORPHINE SULFATE. [Suspect]
     Active Substance: MORPHINE SULFATE
     Indication: ABDOMINAL PAIN UPPER
     Dosage: UNK
     Route: 065
     Dates: start: 20110225
  4. DILAUDID [Suspect]
     Active Substance: HYDROMORPHONE HYDROCHLORIDE
     Indication: ABDOMINAL PAIN UPPER
     Dosage: UNK
     Route: 065
     Dates: start: 20110225
  5. LORAZEPAM. [Suspect]
     Active Substance: LORAZEPAM
     Indication: ABDOMINAL PAIN UPPER
     Dosage: UNK
     Route: 065
     Dates: start: 20110225
  6. LORAZEPAM. [Suspect]
     Active Substance: LORAZEPAM
     Indication: ABDOMINAL PAIN UPPER
  7. ZOLOFT [Suspect]
     Active Substance: SERTRALINE HYDROCHLORIDE
     Indication: ABDOMINAL PAIN UPPER
     Dosage: UNK
     Route: 065
     Dates: start: 20110225
  8. ZOLOFT [Suspect]
     Active Substance: SERTRALINE HYDROCHLORIDE
     Indication: ABDOMINAL PAIN UPPER
  9. FENTANYL. [Suspect]
     Active Substance: FENTANYL
     Indication: ABDOMINAL PAIN UPPER
     Dosage: 25 ?G, UNK
     Route: 065
     Dates: start: 20110225
  10. PHENERGAN [Suspect]
     Active Substance: PROMETHAZINE HYDROCHLORIDE
     Indication: ABDOMINAL PAIN UPPER
     Dosage: UNK
     Route: 065
     Dates: start: 20110225
  11. CYMBALTA [Suspect]
     Active Substance: DULOXETINE HYDROCHLORIDE
     Indication: ABDOMINAL PAIN UPPER
  12. KLONOPIN [Suspect]
     Active Substance: CLONAZEPAM
     Indication: ABDOMINAL PAIN UPPER
     Dosage: UNK
     Route: 065
     Dates: start: 20110225
  13. CYMBALTA [Suspect]
     Active Substance: DULOXETINE HYDROCHLORIDE
     Indication: ABDOMINAL PAIN UPPER
     Dosage: UNK
     Route: 065
     Dates: start: 20110225
  14. KLONOPIN [Suspect]
     Active Substance: CLONAZEPAM
     Indication: ABDOMINAL PAIN UPPER
  15. TORADOL [Suspect]
     Active Substance: KETOROLAC TROMETHAMINE
     Indication: ABDOMINAL PAIN UPPER
     Dosage: UNK
     Route: 065
     Dates: start: 20110225

REACTIONS (2)
  - Overdose [Fatal]
  - Abnormal behaviour [Fatal]

NARRATIVE: CASE EVENT DATE: 201103
